FAERS Safety Report 6661849-8 (Version None)
Quarter: 2010Q1

REPORT INFORMATION
  Report Type: 
  Country: None (occurrence: None)
  Receive Date: 20100331
  Receipt Date: 20090810
  Transmission Date: 20100710
  Serious: No
  Sender: FDA-Public Use
  Company Number: US-BRISTOL-MYERS SQUIBB COMPANY-14735526

PATIENT
  Age: 84 Year
  Sex: Female
  Weight: 35 kg

DRUGS (3)
  1. ERBITUX [Suspect]
     Indication: TONGUE NEOPLASM MALIGNANT STAGE UNSPECIFIED
     Route: 042
     Dates: start: 20081101, end: 20090101
  2. BENADRYL [Concomitant]
     Indication: PREMEDICATION
     Route: 042
  3. TYLENOL-500 [Concomitant]
     Indication: PREMEDICATION
     Route: 048

REACTIONS (2)
  - EXTRAVASATION [None]
  - NO ADVERSE EVENT [None]
